FAERS Safety Report 4765567-2 (Version None)
Quarter: 2005Q3

REPORT INFORMATION
  Report Type: 
  Country: None (occurrence: None)
  Receive Date: 20050906
  Receipt Date: 20050825
  Transmission Date: 20060218
  Serious: Yes (Death, Other)
  Sender: FDA-Public Use
  Company Number: 2005117584

PATIENT
  Age: 3 Year
  Sex: Female
  Weight: 15 kg

DRUGS (5)
  1. METHYLPREDNISOLONE SODIUM SUCCINATE [Suspect]
     Indication: TOXIC EPIDERMAL NECROLYSIS
     Dosage: 125 MG/DAY, UNKNOWN
     Route: 065
  2. PREDNISONE [Suspect]
     Indication: TOXIC EPIDERMAL NECROLYSIS
     Dosage: UNKNOWN
     Route: 065
  3. FRAGMIN [Suspect]
     Indication: HAEMORRHAGE
     Dosage: 100IU/HR, INTRAVENOUS
     Route: 042
  4. HEPARIN [Concomitant]
  5. NAFAMOSTAT MESILATE (NAFAMOSTAT MESILATE) [Concomitant]

REACTIONS (37)
  - ACTIVATED PARTIAL THROMBOPLASTIN TIME ABNORMAL [None]
  - ANAEMIA [None]
  - ANTITHROMBIN III DECREASED [None]
  - BLOOD BILIRUBIN INCREASED [None]
  - BLOOD PRESSURE DECREASED [None]
  - BRADYCARDIA [None]
  - BRONCHOPNEUMONIA [None]
  - CATHETER SITE HAEMORRHAGE [None]
  - ECCHYMOSIS [None]
  - ELECTROLYTE IMBALANCE [None]
  - HAEMORRHAGE [None]
  - HAEMORRHAGIC DIATHESIS [None]
  - HEPATIC CONGESTION [None]
  - HEPATIC ENZYME ABNORMAL [None]
  - HEPATIC FUNCTION ABNORMAL [None]
  - HYPOPROTEINAEMIA [None]
  - IMMUNOSUPPRESSION [None]
  - INFLAMMATION [None]
  - MUCOSAL HAEMORRHAGE [None]
  - MUSCLE SPASMS [None]
  - NERVOUS SYSTEM DISORDER [None]
  - PLATELET COUNT DECREASED [None]
  - PNEUMOCOCCAL INFECTION [None]
  - PNEUMOMEDIASTINUM [None]
  - PNEUMONIA BACTERIAL [None]
  - PNEUMOTHORAX [None]
  - PULMONARY HAEMORRHAGE [None]
  - PUPILS UNEQUAL [None]
  - RESPIRATORY ACIDOSIS [None]
  - RESPIRATORY FAILURE [None]
  - SEDATION [None]
  - SKIN HAEMORRHAGE [None]
  - SPUTUM CULTURE POSITIVE [None]
  - STAPHYLOCOCCAL INFECTION [None]
  - TOXIC EPIDERMAL NECROLYSIS [None]
  - TRACHEAL HAEMORRHAGE [None]
  - WHITE BLOOD CELL COUNT DECREASED [None]
